FAERS Safety Report 5080229-2 (Version None)
Quarter: 2006Q3

REPORT INFORMATION
  Report Type: 
  Country: None (occurrence: None)
  Receive Date: 20060815
  Receipt Date: 20060721
  Transmission Date: 20061208
  Serious: Yes (Hospitalization)
  Sender: FDA-Public Use
  Company Number: US-AVENTIS-200617685GDDC

PATIENT
  Age: 42 Year
  Sex: Male
  Weight: 42.67 kg

DRUGS (3)
  1. DOCETAXEL [Suspect]
     Indication: SQUAMOUS CELL CARCINOMA
     Route: 042
     Dates: start: 20060316, end: 20060316
  2. IFOSFAMIDE [Suspect]
     Indication: SQUAMOUS CELL CARCINOMA
     Route: 042
     Dates: start: 20060316, end: 20060316
  3. CARBOPLATIN [Suspect]
     Indication: SQUAMOUS CELL CARCINOMA
     Route: 042
     Dates: start: 20060316, end: 20060316

REACTIONS (17)
  - ANAEMIA [None]
  - BLOOD POTASSIUM DECREASED [None]
  - DEHYDRATION [None]
  - DENTAL CARIES [None]
  - DYSPHAGIA [None]
  - FEEDING TUBE COMPLICATION [None]
  - HAEMOGLOBIN DECREASED [None]
  - HYPERCALCAEMIA [None]
  - INFECTION [None]
  - LEUKOCYTOSIS [None]
  - ORAL INTAKE REDUCED [None]
  - ORAL PAIN [None]
  - PLATELET COUNT INCREASED [None]
  - THERAPY NON-RESPONDER [None]
  - TOOTH EXTRACTION [None]
  - WEIGHT DECREASED [None]
  - WHITE BLOOD CELL COUNT INCREASED [None]
